FAERS Safety Report 24373269 (Version 2)
Quarter: 2024Q4

REPORT INFORMATION
  Report Type: Spontaneous
  Country: TW (occurrence: TW)
  Receive Date: 20240927
  Receipt Date: 20241002
  Transmission Date: 20250114
  Serious: Yes (Hospitalization, Other)
  Sender: PFIZER
  Company Number: TW-PFIZER INC-PV202400125574

PATIENT
  Age: 18 Year
  Sex: Female

DRUGS (3)
  1. VINCRISTINE SULFATE [Suspect]
     Active Substance: VINCRISTINE SULFATE
     Indication: Precursor T-lymphoblastic lymphoma/leukaemia
     Dosage: UNK, CYCLIC
     Dates: start: 20090814
  2. DOXORUBICIN HYDROCHLORIDE [Suspect]
     Active Substance: DOXORUBICIN HYDROCHLORIDE
     Indication: Precursor T-lymphoblastic lymphoma/leukaemia
     Dosage: UNK, CYCLIC
     Dates: start: 20090814
  3. PREDNISOLONE [Suspect]
     Active Substance: PREDNISOLONE
     Indication: Precursor T-lymphoblastic lymphoma/leukaemia
     Dosage: UNK, CYCLIC
     Dates: start: 20090814

REACTIONS (1)
  - Pancytopenia [Recovered/Resolved]

NARRATIVE: CASE EVENT DATE: 20090101
